FAERS Safety Report 6345504-X (Version None)
Quarter: 2009Q3

REPORT INFORMATION
  Report Type: 
  Country: None (occurrence: None)
  Receive Date: 20090821
  Receipt Date: 20090518
  Transmission Date: 20100115
  Serious: No
  Sender: FDA-Public Use
  Company Number: 8046559

PATIENT
  Age: 26 Year
  Sex: Female

DRUGS (1)
  1. CIMZIA [Suspect]
     Indication: CROHN'S DISEASE
     Dosage: 400 MG SC
     Route: 058
     Dates: start: 20090518

REACTIONS (2)
  - NAUSEA [None]
  - URINARY TRACT INFECTION [None]
